FAERS Safety Report 19718200 (Version 1)
Quarter: 2021Q3

REPORT INFORMATION
  Report Type: Spontaneous
  Country: CN (occurrence: CN)
  Receive Date: 20210819
  Receipt Date: 20210819
  Transmission Date: 20211014
  Serious: Yes (Other)
  Sender: FDA-Public Use
  Company Number: CN-PFIZER INC-202101032826

PATIENT
  Age: 65 Year
  Sex: Female

DRUGS (6)
  1. LINEZOLID. [Suspect]
     Active Substance: LINEZOLID
     Indication: ANTI-INFECTIVE THERAPY
     Dosage: UNK
  2. TIGECYCLINE. [Suspect]
     Active Substance: TIGECYCLINE
     Indication: ANTI-INFECTIVE THERAPY
  3. AZTREONAM. [Suspect]
     Active Substance: AZTREONAM
     Indication: ANTI-INFECTIVE THERAPY
  4. FLUCONAZOLE. [Suspect]
     Active Substance: FLUCONAZOLE
     Indication: ANTI-INFECTIVE THERAPY
  5. ETIMICIN [Suspect]
     Active Substance: ETIMICIN SULFATE
     Indication: ANTI-INFECTIVE THERAPY
  6. MEPEM [MEROPENEM] [Suspect]
     Active Substance: MEROPENEM
     Indication: ANTI-INFECTIVE THERAPY

REACTIONS (8)
  - Pneumonia [Unknown]
  - Cardiac failure chronic [Unknown]
  - Malnutrition [Unknown]
  - Parkinsonism [Unknown]
  - Hypertension [Unknown]
  - Respiratory failure [Unknown]
  - Type 2 diabetes mellitus [Unknown]
  - Anaemia [Unknown]

NARRATIVE: CASE EVENT DATE: 20210526
